FAERS Safety Report 4715810-0 (Version None)
Quarter: 2005Q3

REPORT INFORMATION
  Report Type: 
  Country: None (occurrence: None)
  Receive Date: 20050718
  Receipt Date: 20050706
  Transmission Date: 20060218
  Serious: Yes (Hospitalization, Other)
  Sender: FDA-Public Use
  Company Number: 200511685EU

PATIENT
  Age: 52 Year
  Sex: Male

DRUGS (8)
  1. NICODERM [Suspect]
     Indication: SMOKING CESSATION THERAPY
     Dosage: 21MG PER DAY
     Route: 062
     Dates: start: 20020101, end: 20050616
  2. NICODERM [Suspect]
     Dosage: 14MG PER DAY
     Route: 062
  3. CLOPIDOGREL BISULFATE [Concomitant]
     Indication: ANTICOAGULANT THERAPY
     Route: 048
     Dates: start: 20030101
  4. RAMIPRIL [Concomitant]
     Indication: HYPERTENSION
     Route: 048
     Dates: start: 20030101
  5. ATENOLOL [Concomitant]
     Indication: HYPERTENSION
     Dates: start: 20030101
  6. FUROSEMIDE [Concomitant]
     Indication: DIURETIC THERAPY
     Dates: start: 20030101
  7. ASPIRIN [Concomitant]
     Indication: PROPHYLAXIS
     Dates: start: 20030101
  8. ATORVASTATIN CALCIUM [Concomitant]
     Indication: DRUG USE FOR UNKNOWN INDICATION
     Dates: start: 20030101

REACTIONS (5)
  - ASTHENIA [None]
  - DRUG INEFFECTIVE [None]
  - MYOCARDIAL INFARCTION [None]
  - NAUSEA [None]
  - SMOKER [None]
